FAERS Safety Report 24770547 (Version 1)
Quarter: 2024Q4

REPORT INFORMATION
  Report Type: Spontaneous
  Country: DE (occurrence: DE)
  Receive Date: 20241224
  Receipt Date: 20241224
  Transmission Date: 20250114
  Serious: Yes (Other)
  Sender: RANBAXY
  Company Number: DE-ALMIRALL-DE-2024-2331

PATIENT
  Age: 40 Year
  Sex: Male

DRUGS (1)
  1. TILDRAKIZUMAB [Suspect]
     Active Substance: TILDRAKIZUMAB
     Indication: Psoriasis
     Dosage: UNK
     Route: 065
     Dates: start: 20240723, end: 20240829

REACTIONS (5)
  - Subcutaneous abscess [Recovered/Resolved]
  - Pyoderma [Recovered/Resolved]
  - Ear inflammation [Recovered/Resolved]
  - Inflammation [Recovered/Resolved]
  - Genital tract inflammation [Recovered/Resolved]
